FAERS Safety Report 7393048-9 (Version None)
Quarter: 2011Q2

REPORT INFORMATION
  Report Type: 
  Country: None (occurrence: None)
  Receive Date: 20110404
  Receipt Date: 20110329
  Transmission Date: 20111010
  Serious: Yes (Life-Threatening, Other)
  Sender: FDA-Public Use
  Company Number: DE-ABBOTT-11P-062-0713982-00

PATIENT
  Sex: Female
  Weight: 65 kg

DRUGS (4)
  1. LEFLUNOMIDE [Concomitant]
     Indication: PRODUCT USED FOR UNKNOWN INDICATION
     Dosage: DAILY DOSE: 20MG
     Dates: start: 20100301
  2. PREDNISOLONE [Concomitant]
     Indication: PRODUCT USED FOR UNKNOWN INDICATION
     Dosage: AT THE BEGINNING 50MG, CURRENTLY 5MG/D
     Dates: end: 20110101
  3. GLUCOCORTICOIDS [Concomitant]
     Indication: PRODUCT USED FOR UNKNOWN INDICATION
  4. HUMIRA [Suspect]
     Indication: RHEUMATOID ARTHRITIS
     Route: 058
     Dates: start: 20081201, end: 20101001

REACTIONS (7)
  - PERICARDITIS [None]
  - MYOCARDIAL INFARCTION [None]
  - PLEURISY [None]
  - PLEURAL EFFUSION [None]
  - MUSCULOSKELETAL STIFFNESS [None]
  - LUPUS-LIKE SYNDROME [None]
  - PERICARDIAL EFFUSION [None]
